FAERS Safety Report 13073187 (Version 1)
Quarter: 2016Q4

REPORT INFORMATION
  Report Type: Spontaneous
  Country: FR (occurrence: FR)
  Receive Date: 20161229
  Receipt Date: 20161229
  Transmission Date: 20170207
  Serious: Yes (Hospitalization)
  Sender: FDA-Public Use
  Company Number: PHHY2016FR179165

PATIENT
  Age: 2 Month
  Sex: Male
  Weight: 6.2 kg

DRUGS (1)
  1. SANDOSTATIN [Suspect]
     Active Substance: OCTREOTIDE ACETATE
     Indication: HYPERINSULINISM
     Dosage: WITH PROGRESSIVE INCREASE OF DOSES FROM 10 TO 40 MCG/KG DAILY
     Route: 058
     Dates: start: 20161027, end: 20161104

REACTIONS (1)
  - Ileus [Recovered/Resolved]

NARRATIVE: CASE EVENT DATE: 20161103
